FAERS Safety Report 9507108 (Version 1)
Quarter: 2013Q3

REPORT INFORMATION
  Report Type: Spontaneous
  Country: FR (occurrence: None)
  Receive Date: 20130904
  Receipt Date: 20130904
  Transmission Date: 20140515
  Serious: Yes (Hospitalization)
  Sender: FDA-Public Use
  Company Number: SYM-2013-10229

PATIENT
  Age: 72 Year
  Sex: Female

DRUGS (3)
  1. TARGRETIN [Suspect]
     Indication: MYCOSIS FUNGOIDES
     Route: 048
     Dates: start: 20130524, end: 20130623
  2. SINTROM (ACENOCOUMAROL) [Suspect]
     Indication: PULMONARY EMBOLISM
     Dosage: 0.5 DF 1 IN 1 D, ORAL
     Route: 048
     Dates: start: 2012, end: 20130621
  3. PRAVASTATINE SODIQUE (PRAVASTATIN SODIUM) (20 MG) (PRAVASTATIN SODIUM) [Concomitant]

REACTIONS (3)
  - Coagulopathy [None]
  - International normalised ratio increased [None]
  - Blood triglycerides increased [None]
